FAERS Safety Report 21416795 (Version 1)
Quarter: 2022Q4

REPORT INFORMATION
  Report Type: Spontaneous
  Country: US (occurrence: None)
  Receive Date: 20221005
  Receipt Date: 20221005
  Transmission Date: 20230113
  Serious: Yes (Hospitalization)
  Sender: FDA-Public Use
  Company Number: None

PATIENT
  Age: 75 Year
  Sex: Male
  Weight: 79.65 kg

DRUGS (1)
  1. TECARTUS [Suspect]
     Active Substance: BREXUCABTAGENE AUTOLEUCEL
     Route: 042
     Dates: start: 20220906, end: 20220906

REACTIONS (12)
  - Neurotoxicity [None]
  - Pyrexia [None]
  - Abdominal pain [None]
  - Neutropenia [None]
  - Hypotension [None]
  - Cytokine release syndrome [None]
  - Disorientation [None]
  - Dysgraphia [None]
  - Lethargy [None]
  - Memory impairment [None]
  - Affect lability [None]
  - Pancytopenia [None]

NARRATIVE: CASE EVENT DATE: 20220911
